FAERS Safety Report 20086990 (Version 1)
Quarter: 2021Q4

REPORT INFORMATION
  Report Type: Spontaneous
  Country: CA (occurrence: CA)
  Receive Date: 20211118
  Receipt Date: 20211118
  Transmission Date: 20220303
  Serious: Yes (Hospitalization, Disabling)
  Sender: FDA-Public Use
  Company Number: CA-TEVA-2021-CA-1978216

PATIENT
  Age: 83 Year
  Sex: Female
  Weight: 50 kg

DRUGS (4)
  1. CLINDAMYCIN PHOSPHATE [Suspect]
     Active Substance: CLINDAMYCIN PHOSPHATE
     Indication: Soft tissue infection
     Dosage: 900 MILLIGRAM DAILY;
     Route: 048
  2. CLINDAMYCIN PHOSPHATE [Suspect]
     Active Substance: CLINDAMYCIN PHOSPHATE
     Indication: Skin infection
  3. DULOXETINE HYDROCHLORIDE [Concomitant]
     Active Substance: DULOXETINE HYDROCHLORIDE
     Route: 048
  4. HYDROMORPHONE [Concomitant]
     Active Substance: HYDROMORPHONE

REACTIONS (4)
  - Asthenia [Unknown]
  - Clostridium test positive [Unknown]
  - Diarrhoea [Unknown]
  - Hypophagia [Unknown]
